FAERS Safety Report 15259986 (Version 2)
Quarter: 2020Q2

REPORT INFORMATION
  Report Type: Spontaneous
  Country: US (occurrence: US)
  Receive Date: 20180809
  Receipt Date: 20200507
  Transmission Date: 20200713
  Serious: No
  Sender: FDA-Public Use
  Company Number: US-PFIZER INC-2018319464

PATIENT
  Age: 70 Year
  Sex: Female

DRUGS (1)
  1. EXEMESTANE. [Suspect]
     Active Substance: EXEMESTANE
     Indication: BREAST CANCER METASTATIC
     Dosage: 25 MG, AS NEEDED, (25 MG QL (AS MUCH AS IS REQUISITE) (60 PER 30 DAYS))

REACTIONS (1)
  - Bone pain [Unknown]
